FAERS Safety Report 21087124 (Version 1)
Quarter: 2022Q3

REPORT INFORMATION
  Report Type: Spontaneous
  Country: JP (occurrence: JP)
  Receive Date: 20220715
  Receipt Date: 20220715
  Transmission Date: 20221026
  Serious: Yes (Death, Hospitalization, Other)
  Sender: FDA-Public Use
  Company Number: JP-ALVOGEN-2022-ALVOGEN-120635

PATIENT
  Age: 12 Year
  Sex: Male

DRUGS (6)
  1. DEXAMETHASONE [Suspect]
     Active Substance: DEXAMETHASONE
     Indication: Limbic encephalitis
  2. METHYLPREDNISOLONE [Suspect]
     Active Substance: METHYLPREDNISOLONE
     Indication: Limbic encephalitis
     Route: 042
  3. CYCLOSPORINE [Suspect]
     Active Substance: CYCLOSPORINE
     Indication: Limbic encephalitis
  4. ETOPOSIDE [Suspect]
     Active Substance: ETOPOSIDE
     Indication: Limbic encephalitis
  5. MYCOPHENOLATE MOFETIL [Suspect]
     Active Substance: MYCOPHENOLATE MOFETIL
     Indication: Limbic encephalitis
  6. ADALIMUMAB [Suspect]
     Active Substance: ADALIMUMAB
     Indication: Limbic encephalitis

REACTIONS (2)
  - Encephalitis [Fatal]
  - Disease progression [Fatal]
